FAERS Safety Report 23546989 (Version 1)
Quarter: 2024Q1

REPORT INFORMATION
  Report Type: Report from Study
  Country: US (occurrence: US)
  Receive Date: 20240221
  Receipt Date: 20240221
  Transmission Date: 20240410
  Serious: No
  Sender: FDA-Public Use
  Company Number: US-BIOVITRUM-2024-US-002851

PATIENT
  Age: 11 Month
  Sex: Male

DRUGS (2)
  1. SYNAGIS [Suspect]
     Active Substance: PALIVIZUMAB
     Indication: Premature baby
     Dosage: 100MG/ML?MONTHLY
     Route: 030
     Dates: start: 202310, end: 202402
  2. SYNAGIS [Suspect]
     Active Substance: PALIVIZUMAB
     Indication: Premature baby
     Dosage: 50MG/0.5ML?MONTHLY
     Route: 030
     Dates: start: 202310, end: 202402

REACTIONS (1)
  - Drug hypersensitivity [Unknown]
